FAERS Safety Report 19486649 (Version 1)
Quarter: 2021Q3

REPORT INFORMATION
  Report Type: Spontaneous
  Country: US (occurrence: US)
  Receive Date: 20210702
  Receipt Date: 20210702
  Transmission Date: 20211014
  Serious: No
  Sender: FDA-Public Use
  Company Number: US-BIOGEN-2021BI01004652

PATIENT
  Sex: Female
  Weight: 76.2 kg

DRUGS (2)
  1. VUMERITY [Suspect]
     Active Substance: DIROXIMEL FUMARATE
     Indication: MULTIPLE SCLEROSIS
     Route: 065
     Dates: start: 20210226, end: 20210421
  2. VUMERITY [Suspect]
     Active Substance: DIROXIMEL FUMARATE
     Route: 065
     Dates: end: 20210307

REACTIONS (8)
  - Frequent bowel movements [Recovered/Resolved]
  - Gastric disorder [Recovered/Resolved]
  - Vomiting [Recovered/Resolved]
  - Gastrointestinal disorder [Recovered/Resolved]
  - Multiple sclerosis [Unknown]
  - Diarrhoea [Unknown]
  - Abdominal pain [Unknown]
  - Rash pruritic [Unknown]

NARRATIVE: CASE EVENT DATE: 2021
